FAERS Safety Report 10545268 (Version 2)
Quarter: 2014Q4

REPORT INFORMATION
  Report Type: Spontaneous
  Country: JP (occurrence: JP)
  Receive Date: 20141027
  Receipt Date: 20141031
  Transmission Date: 20150529
  Serious: Yes (Life-Threatening)
  Sender: FDA-Public Use
  Company Number: JP-PFIZER INC-2014290344

PATIENT
  Age: 77 Year
  Sex: Female
  Weight: 62 kg

DRUGS (2)
  1. CAMPTO [Suspect]
     Active Substance: IRINOTECAN
     Indication: GASTRIC CANCER
     Dosage: 120 MG, 1X/DAY, 120 MG/BODY (76.1 MG/M2)
     Route: 041
     Dates: start: 20140917, end: 20140917
  2. CAMPTO [Suspect]
     Active Substance: IRINOTECAN
     Dosage: 120 MG, 1X/DAY
     Route: 041
     Dates: start: 20140924, end: 20140924

REACTIONS (1)
  - Interstitial lung disease [Recovered/Resolved]

NARRATIVE: CASE EVENT DATE: 20141003
